FAERS Safety Report 7412193-2 (Version None)
Quarter: 2011Q2

REPORT INFORMATION
  Report Type: 
  Country: None (occurrence: None)
  Receive Date: 20110413
  Receipt Date: 20110401
  Transmission Date: 20111010
  Serious: Yes (Death, Hospitalization)
  Sender: FDA-Public Use
  Company Number: US-ROCHE-657686

PATIENT
  Sex: Male
  Weight: 90.7 kg

DRUGS (11)
  1. BLINDED TOCILIZUMAB [Suspect]
     Indication: RHEUMATOID ARTHRITIS
     Route: 042
     Dates: start: 20080729
  2. TOCILIZUMAB [Suspect]
     Dosage: THE LAST DOSE OF THE STUDY MEDICATION :25 AUGUST 2009.  THERAPY PERMANENTLY DISCONTINUED.
     Route: 042
     Dates: end: 20090921
  3. FLOMAX [Concomitant]
     Dates: start: 20050101, end: 20101223
  4. INSULIN [Concomitant]
     Dosage: DRUG NAME REPORTED: INSULIN 70/30, DOSING FREQUENCY: 35 UNITS IN AM AND 45 UNITS IN PM
     Dates: start: 20060101, end: 20101223
  5. LISINOPRIL [Concomitant]
     Dates: start: 20090818, end: 20100823
  6. TOCILIZUMAB [Suspect]
     Indication: RHEUMATOID ARTHRITIS
     Dosage: ROUTE REPORTED:  IV INF, THERAPY TEMPORARILY INTERRUPTED
     Route: 042
     Dates: end: 20090825
  7. FOLIC ACID [Concomitant]
     Dates: start: 20060113, end: 20101223
  8. METHOTREXATE [Concomitant]
     Dosage: TDD: 0.8 CC QS
     Dates: start: 20060101, end: 20101223
  9. PREDNISONE [Concomitant]
     Dates: start: 20061109, end: 20101223
  10. CRESTOR [Concomitant]
     Dates: start: 20060101, end: 20101223
  11. ASPIRIN [Concomitant]
     Dates: start: 20050101, end: 20101223

REACTIONS (2)
  - COLON CANCER [None]
  - ABDOMINAL PAIN [None]
